FAERS Safety Report 14674630 (Version 1)
Quarter: 2018Q1

REPORT INFORMATION
  Report Type: Spontaneous
  Country: TH (occurrence: TH)
  Receive Date: 20180323
  Receipt Date: 20180323
  Transmission Date: 20180509
  Serious: Yes (Death, Hospitalization, Other)
  Sender: FDA-Public Use
  Company Number: TH-MYLANLABS-2018M1017395

PATIENT
  Age: 50 Year
  Sex: Female

DRUGS (1)
  1. PREDNISOLONE. [Suspect]
     Active Substance: PREDNISOLONE
     Indication: IMMUNE THROMBOCYTOPENIC PURPURA
     Dosage: 15MG DAILY
     Route: 065

REACTIONS (8)
  - Septic shock [Fatal]
  - Brain stem infarction [Recovering/Resolving]
  - Disseminated cryptococcosis [Fatal]
  - Cerebral infarction [Recovering/Resolving]
  - Panniculitis [Unknown]
  - Sepsis [Fatal]
  - Multiple organ dysfunction syndrome [Fatal]
  - Encephalitis [Recovering/Resolving]
